FAERS Safety Report 5032762-7 (Version None)
Quarter: 2006Q2

REPORT INFORMATION
  Report Type: 
  Country: None (occurrence: None)
  Receive Date: 20060622
  Receipt Date: 20060315
  Transmission Date: 20061013
  Serious: Yes (Disabling)
  Sender: FDA-Public Use
  Company Number: US-BRISTOL-MYERS SQUIBB COMPANY-13316740

PATIENT
  Age: 13 Year
  Sex: Male
  Weight: 107 kg

DRUGS (10)
  1. ABILIFY [Suspect]
     Indication: BIPOLAR DISORDER
     Dosage: 5-20 MG QAM, DOSE REDUCED 17-APR-2006
     Route: 048
     Dates: start: 20040308
  2. ABILIFY [Suspect]
     Indication: ATTENTION DEFICIT/HYPERACTIVITY DISORDER
     Dosage: 5-20 MG QAM, DOSE REDUCED 17-APR-2006
     Route: 048
     Dates: start: 20040308
  3. TOPAMAX [Concomitant]
     Dosage: DOSAGE: 50-100 MG
     Dates: start: 20040505, end: 20041018
  4. DEXEDRINE [Concomitant]
     Dates: start: 20041018, end: 20050112
  5. ADDERALL XR 10 [Concomitant]
     Dates: start: 20050112, end: 20050601
  6. LAMICTAL [Concomitant]
     Dosage: GIVEN EVERY MORNING
  7. VYTORIN [Concomitant]
  8. ZYRTEC [Concomitant]
  9. PREVACID [Concomitant]
  10. ZOLOFT [Concomitant]
     Dosage: GIVEN EVERY MORNING

REACTIONS (2)
  - BODY HEIGHT INCREASED [None]
  - WEIGHT INCREASED [None]
